FAERS Safety Report 24067980 (Version 2)
Quarter: 2024Q3

REPORT INFORMATION
  Report Type: Spontaneous
  Country: FR (occurrence: FR)
  Receive Date: 20240710
  Receipt Date: 20240718
  Transmission Date: 20241016
  Serious: Yes (Hospitalization, Other)
  Sender: RANBAXY
  Company Number: FR-LESVI-2024001674

PATIENT
  Age: 38 Year
  Sex: Male

DRUGS (8)
  1. MORPHINE [Suspect]
     Active Substance: MORPHINE
     Indication: Kyphoscoliosis
     Dosage: 40 MILLIGRAM
     Route: 040
  2. MORPHINE [Suspect]
     Active Substance: MORPHINE
     Dosage: 20 MILLIGRAM
     Route: 065
  3. PERICIAZINE [Suspect]
     Active Substance: PERICIAZINE
     Indication: Sleep disorder
     Dosage: 40 DROPS PER DAY
     Route: 048
     Dates: start: 20240324
  4. PERICIAZINE [Suspect]
     Active Substance: PERICIAZINE
     Dosage: 40 DROPS PER DAY
     Route: 048
     Dates: start: 2009
  5. ZOPICLONE [Concomitant]
     Active Substance: ZOPICLONE
     Indication: Insomnia
     Dosage: UNK
     Route: 048
  6. VALIUM [Concomitant]
     Active Substance: DIAZEPAM
     Indication: Product used for unknown indication
     Dosage: UNK
     Route: 048
  7. CYAMEMAZINE [Concomitant]
     Active Substance: CYAMEMAZINE
     Indication: Product used for unknown indication
     Dosage: UNK
     Route: 048
  8. LORMETAZEPAM [Concomitant]
     Active Substance: LORMETAZEPAM
     Indication: Insomnia
     Dosage: UNK
     Route: 048

REACTIONS (11)
  - Cushing^s syndrome [Recovered/Resolved]
  - Pituitary tumour benign [Recovered/Resolved]
  - Disability [Unknown]
  - Weight increased [Not Recovered/Not Resolved]
  - Nausea [Not Recovered/Not Resolved]
  - Constipation [Unknown]
  - Gait disturbance [Unknown]
  - Spinal operation [Unknown]
  - Haemorrhoids [Recovered/Resolved]
  - Kyphoscoliosis [Unknown]
  - Product use in unapproved indication [Unknown]

NARRATIVE: CASE EVENT DATE: 20090101
